FAERS Safety Report 24937717 (Version 2)
Quarter: 2025Q1

REPORT INFORMATION
  Report Type: Spontaneous
  Country: GB (occurrence: GB)
  Receive Date: 20250206
  Receipt Date: 20250331
  Transmission Date: 20250409
  Serious: Yes (Life-Threatening, Disabling, Other)
  Sender: TORRENT PHARMA INC.
  Company Number: None

PATIENT
  Age: 50 Year
  Sex: Male

DRUGS (1)
  1. VENLAFAXINE [Suspect]
     Active Substance: VENLAFAXINE HYDROCHLORIDE
     Indication: Product used for unknown indication
     Dosage: 75MG ONCE A DAY
     Route: 065
     Dates: start: 20070101, end: 20200101

REACTIONS (7)
  - Sexual dysfunction [Not Recovered/Not Resolved]
  - Antidepressant discontinuation syndrome [Not Recovered/Not Resolved]
  - Suicide attempt [Recovered/Resolved]
  - Anhedonia [Not Recovered/Not Resolved]
  - Mental impairment [Unknown]
  - Social problem [Unknown]
  - Reading disorder [Unknown]

NARRATIVE: CASE EVENT DATE: 20200101
